FAERS Safety Report 4913702-5 (Version None)
Quarter: 2006Q1

REPORT INFORMATION
  Report Type: 
  Country: None (occurrence: None)
  Receive Date: 20060210
  Receipt Date: 20060207
  Transmission Date: 20060701
  Serious: Yes (Hospitalization)
  Sender: FDA-Public Use
  Company Number: A0559419A

PATIENT
  Age: 8 Year
  Sex: Female
  Weight: 38.1022 kg

DRUGS (3)
  1. PAXIL [Suspect]
     Indication: ANXIETY
     Dosage: ORAL
     Route: 048
     Dates: start: 20030804, end: 20030829
  2. SERTRALINE HYDROCHLORIDE [Suspect]
     Indication: ANXIETY
     Dosage: 25 MG/ ORAL
     Route: 048
     Dates: start: 20030101, end: 20030101
  3. RISPERIDONE [Suspect]
     Indication: ANXIETY
     Dates: start: 20030101, end: 20030101

REACTIONS (11)
  - AGGRESSION [None]
  - AGITATION [None]
  - ANXIETY [None]
  - CONDITION AGGRAVATED [None]
  - ENERGY INCREASED [None]
  - HOMICIDAL IDEATION [None]
  - PHYSICAL ASSAULT [None]
  - PSYCHOMOTOR HYPERACTIVITY [None]
  - SCHOOL REFUSAL [None]
  - SELF INJURIOUS BEHAVIOUR [None]
  - SUICIDAL IDEATION [None]
